FAERS Safety Report 5236414-X (Version None)
Quarter: 2007Q1

REPORT INFORMATION
  Report Type: 
  Country: None (occurrence: None)
  Receive Date: 20070208
  Receipt Date: 20070130
  Transmission Date: 20070707
  Serious: Yes (Other)
  Sender: FDA-Public Use
  Company Number: 235930

PATIENT
  Age: 59 Year
  Sex: Male

DRUGS (1)
  1. BEVACIZUMAB(BEVACIZUMAB) PWDR + SOLVENT,INFUSION SOLN, 100MG [Suspect]
     Indication: DETACHMENT OF RETINAL PIGMENT EPITHELIUM
     Dosage: 1.25 MG, UNK, INTRAVITREAL

REACTIONS (3)
  - CONDITION AGGRAVATED [None]
  - DETACHMENT OF RETINAL PIGMENT EPITHELIUM [None]
  - METAMORPHOPSIA [None]
